FAERS Safety Report 15309312 (Version 1)
Quarter: 2018Q3

REPORT INFORMATION
  Report Type: Spontaneous
  Country: US (occurrence: US)
  Receive Date: 20180811
  Receipt Date: 20180811
  Transmission Date: 20181010
  Serious: Yes (Disabling)
  Sender: FDA-Public Use
  Company Number: None

PATIENT
  Age: 62 Year
  Sex: Female
  Weight: 74.25 kg

DRUGS (20)
  1. AIMOVIG [Suspect]
     Active Substance: ERENUMAB-AOOE
     Indication: MIGRAINE
     Dosage: ?          QUANTITY:1 INJECTION(S);OTHER FREQUENCY:MONTHLY;?
     Route: 058
     Dates: start: 20180811, end: 20180811
  2. ZOLOFT [Concomitant]
     Active Substance: SERTRALINE HYDROCHLORIDE
  3. TRULANCE [Concomitant]
     Active Substance: PLECANATIDE
  4. VITAMIN D [Concomitant]
     Active Substance: CHOLECALCIFEROL
  5. BENADRYL [Concomitant]
     Active Substance: DIPHENHYDRAMINE HYDROCHLORIDE
  6. ARCTIC COD LIVER OIL [Concomitant]
  7. KLONOPIN [Concomitant]
     Active Substance: CLONAZEPAM
  8. L?THYROXINE [Concomitant]
     Active Substance: LEVOTHYROXINE
  9. FIORICET [Concomitant]
     Active Substance: ACETAMINOPHEN\BUTALBITAL\CAFFEINE
  10. PHENOBARBITAL. [Concomitant]
     Active Substance: PHENOBARBITAL
  11. RELPAX [Concomitant]
     Active Substance: ELETRIPTAN HYDROBROMIDE
  12. VALERIAN ROOT [Concomitant]
     Active Substance: VALERIAN
  13. VITAMINS NOS [Concomitant]
     Active Substance: VITAMINS
  14. PRILOSEC [Concomitant]
     Active Substance: OMEPRAZOLE MAGNESIUM
  15. MULTIPLE VITAMIN/MINERAL [Concomitant]
  16. MELATONIN [Concomitant]
     Active Substance: MELATONIN
  17. ZYZOL [Concomitant]
  18. RESTORIL [Concomitant]
     Active Substance: TEMAZEPAM
  19. PREMPRO [Concomitant]
     Active Substance: ESTROGENS, CONJUGATED\MEDROXYPROGESTERONE ACETATE
  20. GLUCOSAMINE/CHONDROITIN/MSM [Concomitant]

REACTIONS (1)
  - Nausea [None]

NARRATIVE: CASE EVENT DATE: 20180811
